FAERS Safety Report 18945216 (Version 2)
Quarter: 2021Q1

REPORT INFORMATION
  Report Type: Spontaneous
  Country: US (occurrence: US)
  Receive Date: 20210226
  Receipt Date: 20210325
  Transmission Date: 20210420
  Serious: No
  Sender: FDA-Public Use
  Company Number: US-ASTRAZENECA-2021A077622

PATIENT
  Age: 24036 Day
  Sex: Female
  Weight: 90.7 kg

DRUGS (1)
  1. BYDUREON BCISE [Suspect]
     Active Substance: EXENATIDE
     Indication: TYPE 2 DIABETES MELLITUS
     Route: 058
     Dates: start: 20210205

REACTIONS (5)
  - Device issue [Unknown]
  - Injection site erythema [Not Recovered/Not Resolved]
  - Product dose omission issue [Unknown]
  - Wrong technique in product usage process [Recovered/Resolved with Sequelae]
  - Product administration error [Recovered/Resolved with Sequelae]

NARRATIVE: CASE EVENT DATE: 20210205
